FAERS Safety Report 20557152 (Version 2)
Quarter: 2022Q1

REPORT INFORMATION
  Report Type: Spontaneous
  Country: US (occurrence: US)
  Receive Date: 20220307
  Receipt Date: 20220309
  Transmission Date: 20220423
  Serious: No
  Sender: FDA-Public Use
  Company Number: US-SANOFI-00994429

PATIENT
  Weight: 74 kg

DRUGS (1)
  1. ALDURAZYME [Suspect]
     Active Substance: LARONIDASE
     Indication: Unevaluable event
     Dosage: 46.4 MG
     Route: 065

REACTIONS (1)
  - Product prescribing error [Unknown]
